FAERS Safety Report 17495575 (Version 1)
Quarter: 2020Q1

REPORT INFORMATION
  Report Type: Spontaneous
  Country: US (occurrence: US)
  Receive Date: 20200303
  Receipt Date: 20200303
  Transmission Date: 20200409
  Serious: No
  Sender: FDA-Public Use
  Company Number: US-PERRIGO-19US007669

PATIENT
  Age: 64 Year
  Sex: Male
  Weight: 63.49 kg

DRUGS (1)
  1. PODOFILOX. [Suspect]
     Active Substance: PODOFILOX
     Indication: SKIN PAPILLOMA
     Dosage: TWO DABS, QD
     Route: 061
     Dates: start: 20190605

REACTIONS (1)
  - Off label use [Not Recovered/Not Resolved]

NARRATIVE: CASE EVENT DATE: 20190605
